FAERS Safety Report 11422918 (Version 1)
Quarter: 2015Q3

REPORT INFORMATION
  Report Type: Spontaneous
  Country: US (occurrence: None)
  Receive Date: 20150826
  Receipt Date: 20150826
  Transmission Date: 20151125
  Serious: Yes (Life-Threatening, Disabling)
  Sender: FDA-Public Use
  Company Number: None

PATIENT
  Age: 34 Year
  Sex: Female
  Weight: 72.58 kg

DRUGS (1)
  1. PAXIL [Suspect]
     Active Substance: PAROXETINE HYDROCHLORIDE
     Indication: MAJOR DEPRESSION
     Dosage: 1 PILL
     Route: 048

REACTIONS (6)
  - Agitation [None]
  - Agoraphobia [None]
  - Self injurious behaviour [None]
  - Thinking abnormal [None]
  - Delusion [None]
  - Aggression [None]

NARRATIVE: CASE EVENT DATE: 20130816
